FAERS Safety Report 9290496 (Version 11)
Quarter: 2013Q4

REPORT INFORMATION
  Report Type: Report from Study
  Country: US (occurrence: US)
  Receive Date: 20130515
  Receipt Date: 20131025
  Transmission Date: 20140711
  Serious: Yes (Other)
  Sender: FDA-Public Use
  Company Number: US-VERTEX PHARMACEUTICALS INC-2013-006019

PATIENT
  Age: 66 Year
  Sex: Male
  Weight: 64.85 kg

DRUGS (7)
  1. VX-950 (TELAPREVIR) [Suspect]
     Indication: HEPATITIS C
     Dosage: 750 MG, TID
     Route: 048
     Dates: start: 20130508, end: 20130731
  2. RIBAVIRIN [Suspect]
     Indication: HEPATITIS C
     Dosage: 1 DF, BID
     Route: 048
     Dates: start: 20130508
  3. PEGASYS [Suspect]
     Indication: HEPATITIS C
     Dosage: 180 ?G, QW
     Route: 058
     Dates: start: 20130508
  4. CYCLOSPORIN [Concomitant]
     Indication: LIVER TRANSPLANT
     Dosage: 50 MG, BID
     Dates: end: 20130519
  5. CYCLOSPORIN [Concomitant]
     Dosage: 75 MG, AS DIRECTED
     Route: 048
     Dates: start: 20130520
  6. PROGRAF [Concomitant]
     Indication: LIVER TRANSPLANT
     Dosage: 1 MG, BID
     Route: 048
  7. PROGRAF [Concomitant]
     Indication: IMMUNOSUPPRESSION

REACTIONS (17)
  - White blood cell count decreased [Not Recovered/Not Resolved]
  - Herpes zoster [Unknown]
  - Flushing [Recovered/Resolved]
  - Influenza like illness [Not Recovered/Not Resolved]
  - Headache [Not Recovered/Not Resolved]
  - Faeces discoloured [Not Recovered/Not Resolved]
  - Tongue coated [Not Recovered/Not Resolved]
  - Decreased appetite [Not Recovered/Not Resolved]
  - Weight decreased [Recovered/Resolved]
  - Off label use [Unknown]
  - Fatigue [Not Recovered/Not Resolved]
  - Rash [Recovered/Resolved]
  - Platelet count decreased [Recovered/Resolved]
  - Anorectal discomfort [Recovered/Resolved]
  - Dysgeusia [Not Recovered/Not Resolved]
  - Nausea [Recovered/Resolved]
  - Pruritus [Recovered/Resolved]
